FAERS Safety Report 15776751 (Version 3)
Quarter: 2019Q2

REPORT INFORMATION
  Report Type: Spontaneous
  Country: US (occurrence: US)
  Receive Date: 20181231
  Receipt Date: 20190530
  Transmission Date: 20190711
  Serious: No
  Sender: FDA-Public Use
  Company Number: US-PFIZER INC-2018534446

PATIENT
  Age: 40 Year
  Sex: Female

DRUGS (8)
  1. MITOXANTRONE [Concomitant]
     Active Substance: MITOXANTRONE HYDROCHLORIDE
     Indication: CHEMOTHERAPY
     Dosage: UNK
  2. DOCETAXEL. [Suspect]
     Active Substance: DOCETAXEL
     Indication: BREAST CANCER FEMALE
     Dosage: UNK, CYCLIC (1 CYCLE)
     Dates: start: 201301, end: 201301
  3. DOCETAXEL. [Suspect]
     Active Substance: DOCETAXEL
     Indication: BREAST CANCER FEMALE
     Dosage: UNK, CYCLIC (1 CYCLE)
     Dates: start: 201301, end: 201301
  4. DOCEFREZ [Suspect]
     Active Substance: DOCETAXEL ANHYDROUS
     Indication: BREAST CANCER FEMALE
     Dosage: UNK, CYCLIC (1 CYCLE)
     Dates: start: 201301, end: 201301
  5. TAXOTERE [Suspect]
     Active Substance: DOCETAXEL
     Indication: BREAST CANCER FEMALE
     Dosage: UNK, CYCLIC (1 CYCLE)
     Dates: start: 201301, end: 201301
  6. ADRIAMYCIN [Concomitant]
     Active Substance: DOXORUBICIN HYDROCHLORIDE
     Indication: CHEMOTHERAPY
     Dosage: UNK
  7. CABAZITAXEL [Concomitant]
     Active Substance: CABAZITAXEL
     Indication: CHEMOTHERAPY
     Dosage: UNK
  8. DOXIL [Concomitant]
     Active Substance: DOXORUBICIN HYDROCHLORIDE
     Indication: CHEMOTHERAPY
     Dosage: UNK

REACTIONS (1)
  - Alopecia [Not Recovered/Not Resolved]
